FAERS Safety Report 11906334 (Version 1)
Quarter: 2016Q1

REPORT INFORMATION
  Report Type: Spontaneous
  Country: US (occurrence: US)
  Receive Date: 20160111
  Receipt Date: 20160111
  Transmission Date: 20160526
  Serious: No
  Sender: FDA-Public Use
  Company Number: US-PFIZER INC-2015456225

PATIENT
  Age: 84 Year
  Sex: Female
  Weight: 46.72 kg

DRUGS (8)
  1. ISOSORBIDE MONONITRATE. [Concomitant]
     Active Substance: ISOSORBIDE MONONITRATE
     Dosage: 300 MG, 1X/DAY
     Dates: end: 20151207
  2. TOPROLOL XL [Concomitant]
     Indication: CARDIAC DISORDER
     Dosage: 100 MG, 1X/DAY
  3. BABY ASPIRIN [Concomitant]
     Active Substance: ASPIRIN
     Dosage: 81 MG, 1X/DAY
     Dates: end: 20151207
  4. DIOVAN [Concomitant]
     Active Substance: VALSARTAN
     Indication: CARDIAC DISORDER
     Dosage: 40 MG, 1X/DAY
  5. CLOPIDOGREL [Concomitant]
     Active Substance: CLOPIDOGREL BISULFATE
     Dosage: 75 MG, 1X/DAY
  6. SERTRALINE HCL [Suspect]
     Active Substance: SERTRALINE HYDROCHLORIDE
     Indication: DEPRESSION
     Dosage: 25 MG, IN THE MORNING
     Dates: start: 20151207, end: 201512
  7. SERTRALINE HCL [Suspect]
     Active Substance: SERTRALINE HYDROCHLORIDE
     Dosage: HALF A PILL, IN THE EVENING
     Dates: start: 201512
  8. RANEXA [Concomitant]
     Active Substance: RANOLAZINE
     Dosage: 500 MG, UNK
     Dates: end: 20151207

REACTIONS (6)
  - Intentional product use issue [Unknown]
  - Nausea [Recovering/Resolving]
  - Somnolence [Recovering/Resolving]
  - Erythema [Unknown]
  - Dizziness [Recovering/Resolving]
  - Rash pruritic [Recovering/Resolving]

NARRATIVE: CASE EVENT DATE: 2015
